FAERS Safety Report 13336936 (Version 1)
Quarter: 2017Q1

REPORT INFORMATION
  Report Type: Spontaneous
  Country: US (occurrence: US)
  Receive Date: 20170314
  Receipt Date: 20170314
  Transmission Date: 20170428
  Serious: Yes (Disabling)
  Sender: FDA-Public Use
  Company Number: None

PATIENT
  Age: 74 Year
  Sex: Female
  Weight: 58.5 kg

DRUGS (5)
  1. CENTRUM [Concomitant]
     Active Substance: VITAMINS
  2. SUPER OMEGA 3 EPA 300 / DHA 200 FORMULA FISH OIL [Concomitant]
     Active Substance: DOCONEXENT\ ICOSAPENT\ FISH OIL\ OMEGA-3 FATTY ACIDS
  3. VITAMIN D [Concomitant]
     Active Substance: CHOLECALCIFEROL
  4. FISH OIL [Concomitant]
     Active Substance: FISH OIL
  5. TEARS NATURALE II POLYQUAD [Suspect]
     Active Substance: DEXTRAN 70\HYPROMELLOSE 2910 (4000 MPA.S)
     Indication: DRY EYE
     Route: 047
     Dates: end: 20160220

REACTIONS (3)
  - Eye discharge [None]
  - Vision blurred [None]
  - Ocular hyperaemia [None]

NARRATIVE: CASE EVENT DATE: 20170128
